FAERS Safety Report 9287756 (Version 1)
Quarter: 2013Q2

REPORT INFORMATION
  Report Type: Spontaneous
  Country: US (occurrence: US)
  Receive Date: 20130514
  Receipt Date: 20130514
  Transmission Date: 20140414
  Serious: No
  Sender: FDA-Public Use
  Company Number: US-PFIZER INC-2013146924

PATIENT
  Age: 67 Year
  Sex: Male
  Weight: 68.03 kg

DRUGS (3)
  1. ADVIL [Suspect]
     Indication: MUSCLE RUPTURE
     Dosage: 200 MG, TWO TIMES A DAY
     Dates: start: 20130510
  2. ADVIL [Suspect]
     Indication: PAIN
  3. LEXAPRO [Concomitant]
     Indication: DEPRESSION
     Dosage: 10 MG, DAILY
     Dates: start: 2009

REACTIONS (4)
  - Insomnia [Unknown]
  - Poor quality sleep [Unknown]
  - Nightmare [Recovered/Resolved]
  - Fatigue [Unknown]
